FAERS Safety Report 14013170 (Version 2)
Quarter: 2017Q4

REPORT INFORMATION
  Report Type: Spontaneous
  Country: PL (occurrence: PL)
  Receive Date: 20170926
  Receipt Date: 20171024
  Transmission Date: 20180321
  Serious: Yes (Other)
  Sender: FDA-Public Use
  Company Number: PL-ASTRAZENECA-2017SE96696

PATIENT

DRUGS (1)
  1. BRILIQUE [Suspect]
     Active Substance: TICAGRELOR
     Dosage: 90.0MG UNKNOWN
     Route: 048

REACTIONS (2)
  - Platelet disorder [Unknown]
  - Acute coronary syndrome [Unknown]
